FAERS Safety Report 13004163 (Version 2)
Quarter: 2017Q1

REPORT INFORMATION
  Report Type: Spontaneous
  Country: FR (occurrence: FR)
  Receive Date: 20161206
  Receipt Date: 20170114
  Transmission Date: 20170428
  Serious: Yes (Other)
  Sender: FDA-Public Use
  Company Number: FR-AMGEN-FRASP2016170063

PATIENT
  Age: 44 Year
  Sex: Male

DRUGS (1)
  1. NEUPOGEN [Suspect]
     Active Substance: FILGRASTIM
     Indication: PRODUCT USED FOR UNKNOWN INDICATION
     Dosage: 10 MUG/KG, QD (10MCG / KG / D)
     Route: 065
     Dates: start: 201610

REACTIONS (4)
  - Night sweats [Recovered/Resolved]
  - Headache [Not Recovered/Not Resolved]
  - Intracranial pressure increased [Recovering/Resolving]
  - Asthenia [Unknown]

NARRATIVE: CASE EVENT DATE: 2016
